FAERS Safety Report 24868413 (Version 1)
Quarter: 2025Q1

REPORT INFORMATION
  Report Type: Spontaneous
  Country: US (occurrence: US)
  Receive Date: 20250121
  Receipt Date: 20250121
  Transmission Date: 20250409
  Serious: Yes (Death, Hospitalization, Other)
  Sender: PFIZER
  Company Number: US-PFIZER INC-202500012211

PATIENT
  Age: 33 Year
  Sex: Female

DRUGS (4)
  1. HYDROXYZINE PAMOATE [Suspect]
     Active Substance: HYDROXYZINE PAMOATE
     Route: 048
  2. PROPRANOLOL [Suspect]
     Active Substance: PROPRANOLOL HYDROCHLORIDE
     Route: 048
  3. FLUOXETINE [Suspect]
     Active Substance: FLUOXETINE HYDROCHLORIDE
     Route: 048
  4. ALPRAZOLAM [Suspect]
     Active Substance: ALPRAZOLAM
     Route: 048

REACTIONS (1)
  - Completed suicide [Fatal]

NARRATIVE: CASE EVENT DATE: 20230101
